FAERS Safety Report 21185054 (Version 5)
Quarter: 2023Q2

REPORT INFORMATION
  Report Type: Report from Study
  Country: BR (occurrence: BR)
  Receive Date: 20220808
  Receipt Date: 20230426
  Transmission Date: 20230722
  Serious: Yes (Hospitalization)
  Sender: FDA-Public Use
  Company Number: BR-TAKEDA-2022TUS053492

PATIENT
  Age: 6 Year
  Sex: Male
  Weight: 22 kg

DRUGS (12)
  1. HEMO-8R [Suspect]
     Active Substance: ANTIHEMOPHILIC FACTOR, HUMAN RECOMBINANT
     Indication: Prophylaxis
     Dosage: UNK
     Route: 042
     Dates: start: 20210615
  2. HEMO-8R [Suspect]
     Active Substance: ANTIHEMOPHILIC FACTOR, HUMAN RECOMBINANT
     Indication: Factor VIII deficiency
  3. DESLORATADINE [Concomitant]
     Active Substance: DESLORATADINE
     Indication: Rhinitis
     Dosage: 7 MILLILITER, QD
     Route: 065
     Dates: start: 20220418, end: 20220418
  4. FEXOFENADINE [Concomitant]
     Active Substance: FEXOFENADINE HYDROCHLORIDE
     Indication: Rhinitis
     Dosage: 6 MILLIGRAM, QD
     Route: 065
     Dates: start: 20220417, end: 20220417
  5. METAMIZOLE SODIUM [Concomitant]
     Active Substance: METAMIZOLE SODIUM
     Indication: Oropharyngeal pain
     Dosage: 5 MILLILITER, QD
     Route: 065
     Dates: start: 20220402, end: 20220402
  6. METAMIZOLE SODIUM [Concomitant]
     Active Substance: METAMIZOLE SODIUM
     Indication: Headache
  7. IBUPROFEN [Concomitant]
     Active Substance: IBUPROFEN
     Indication: Oropharyngeal pain
     Dosage: 22 DOSAGE FORM, BID
     Route: 065
     Dates: start: 20220331, end: 20220606
  8. IBUPROFEN [Concomitant]
     Active Substance: IBUPROFEN
     Indication: Arthralgia
     Dosage: 20 DOSAGE FORM, QD
     Route: 065
     Dates: start: 20210715, end: 20210720
  9. IBUPROFEN [Concomitant]
     Active Substance: IBUPROFEN
     Indication: Pain in extremity
     Dosage: 20 DOSAGE FORM, QD
     Route: 065
     Dates: start: 20210726, end: 20210804
  10. IBUPROFEN [Concomitant]
     Active Substance: IBUPROFEN
     Indication: Headache
     Dosage: 22 DOSAGE FORM, QD
     Route: 065
     Dates: start: 20220305, end: 20220308
  11. IBUPROFEN [Concomitant]
     Active Substance: IBUPROFEN
     Indication: Mouth injury
     Dosage: 22 DOSAGE FORM, QD
     Route: 065
     Dates: start: 20220605, end: 20220605
  12. IBUPROFEN [Concomitant]
     Active Substance: IBUPROFEN
     Dosage: 22 DOSAGE FORM, BID
     Route: 065
     Dates: start: 20220704, end: 20220707

REACTIONS (1)
  - Abdominal pain [Recovered/Resolved]

NARRATIVE: CASE EVENT DATE: 20220802
